FAERS Safety Report 7402498-3 (Version None)
Quarter: 2011Q2

REPORT INFORMATION
  Report Type: 
  Country: None (occurrence: None)
  Receive Date: 20110408
  Receipt Date: 20110329
  Transmission Date: 20111010
  Serious: Yes (Other)
  Sender: FDA-Public Use
  Company Number: PHHY2011AR26027

PATIENT
  Sex: Female

DRUGS (1)
  1. EXELON [Suspect]
     Indication: DEMENTIA
     Dosage: PTACH 10,ONE PATCH DAILY
     Route: 062

REACTIONS (3)
  - FALL [None]
  - APPLICATION SITE ERYTHEMA [None]
  - LOWER LIMB FRACTURE [None]
